FAERS Safety Report 9386333 (Version 8)
Quarter: 2015Q2

REPORT INFORMATION
  Report Type: Report from Study
  Country: CA (occurrence: CA)
  Receive Date: 20130708
  Receipt Date: 20150519
  Transmission Date: 20150821
  Serious: Yes (Hospitalization)
  Sender: FDA-Public Use
  Company Number: CA-ROCHE-1245657

PATIENT
  Age: 60 Year
  Sex: Female
  Weight: 89.4 kg

DRUGS (10)
  1. ACTONEL [Concomitant]
     Active Substance: RISEDRONATE SODIUM
  2. RITUXAN [Suspect]
     Active Substance: RITUXIMAB
     Indication: RHEUMATOID ARTHRITIS
     Dosage: LAST DOSE: 02/OCT/2014
     Route: 042
     Dates: start: 20101115
  3. METHYLPREDNISOLONE. [Concomitant]
     Active Substance: METHYLPREDNISOLONE
     Route: 042
  4. METHOTREXATE [Concomitant]
     Active Substance: METHOTREXATE
  5. ACETAMINOPHEN. [Concomitant]
     Active Substance: ACETAMINOPHEN
     Route: 048
     Dates: start: 20130808
  6. EFFEXOR [Suspect]
     Active Substance: VENLAFAXINE HYDROCHLORIDE
     Indication: PRODUCT USED FOR UNKNOWN INDICATION
     Route: 065
  7. FOLIC ACID. [Concomitant]
     Active Substance: FOLIC ACID
  8. NEXIUM [Concomitant]
     Active Substance: ESOMEPRAZOLE MAGNESIUM
  9. VAGIFEM [Concomitant]
     Active Substance: ESTRADIOL
  10. DIPHENHYDRAMINE HCL [Concomitant]
     Active Substance: DIPHENHYDRAMINE HYDROCHLORIDE
     Route: 048
     Dates: start: 20130808

REACTIONS (14)
  - Hyperhidrosis [Not Recovered/Not Resolved]
  - Peripheral coldness [Unknown]
  - Ill-defined disorder [Unknown]
  - Headache [Unknown]
  - Hyperhidrosis [Unknown]
  - Depression [Not Recovered/Not Resolved]
  - Blood pressure increased [Unknown]
  - Drug ineffective [Unknown]
  - Arthralgia [Not Recovered/Not Resolved]
  - Fatigue [Not Recovered/Not Resolved]
  - Chills [Not Recovered/Not Resolved]
  - Pyrexia [Unknown]
  - Blood pressure diastolic decreased [Unknown]
  - Tremor [Unknown]

NARRATIVE: CASE EVENT DATE: 201210
